FAERS Safety Report 7161553-6 (Version None)
Quarter: 2010Q4

REPORT INFORMATION
  Report Type: 
  Country: None (occurrence: None)
  Receive Date: 20101215
  Receipt Date: 20101202
  Transmission Date: 20110411
  Serious: Yes (Hospitalization, Other)
  Sender: FDA-Public Use
  Company Number: PHHY2010US44905

PATIENT
  Sex: Male

DRUGS (1)
  1. EXJADE [Suspect]
     Indication: IRON OVERLOAD
     Dosage: 1500 MG, QD
     Route: 048
     Dates: end: 20100501

REACTIONS (5)
  - LUNG CANCER METASTATIC [None]
  - LUNG LOBECTOMY [None]
  - NON-SMALL CELL LUNG CANCER [None]
  - PULMONARY MASS [None]
  - WEIGHT DECREASED [None]
